FAERS Safety Report 17534107 (Version 1)
Quarter: 2020Q1

REPORT INFORMATION
  Report Type: Spontaneous
  Country: US (occurrence: US)
  Receive Date: 20200312
  Receipt Date: 20200312
  Transmission Date: 20200409
  Serious: No
  Sender: FDA-Public Use
  Company Number: US-GALDERMA-US19041650

PATIENT
  Sex: Female

DRUGS (2)
  1. TRI-LUMA [Suspect]
     Active Substance: FLUOCINOLONE ACETONIDE\HYDROQUINONE\TRETINOIN
     Indication: PRODUCT USED FOR UNKNOWN INDICATION
     Route: 061
  2. TRI-LUMA [Suspect]
     Active Substance: FLUOCINOLONE ACETONIDE\HYDROQUINONE\TRETINOIN
     Route: 061

REACTIONS (6)
  - Product use in unapproved indication [Recovered/Resolved]
  - Pain of skin [Unknown]
  - Treatment noncompliance [Recovered/Resolved]
  - Intentional product misuse [Recovered/Resolved]
  - Intentional underdose [Recovered/Resolved]
  - Skin burning sensation [Unknown]
